FAERS Safety Report 19470548 (Version 1)
Quarter: 2021Q2

REPORT INFORMATION
  Report Type: Report from Study
  Country: FR (occurrence: FR)
  Receive Date: 20210628
  Receipt Date: 20210628
  Transmission Date: 20210717
  Serious: Yes (Other)
  Sender: FDA-Public Use
  Company Number: FR-TAKEDA-2021TUS038088

PATIENT
  Age: 38 Year
  Sex: Male

DRUGS (8)
  1. FERINJECT [Concomitant]
     Active Substance: FERRIC CARBOXYMALTOSE
     Indication: IRON DEFICIENCY
     Dosage: 10 MILLILITER, BID
     Route: 042
     Dates: start: 20171110, end: 20171110
  2. URSODEOXYCHOLIC ACID [Concomitant]
     Active Substance: URSODIOL
     Indication: PROPHYLAXIS
     Dosage: 250 MILLIGRAM, BID
     Route: 048
     Dates: start: 20200124
  3. TEDUGLUTIDE [Suspect]
     Active Substance: TEDUGLUTIDE
     Indication: SHORT-BOWEL SYNDROME
     Dosage: 3.0 MILLIGRAM, (0.05MG/KG), QD
     Route: 065
     Dates: start: 20170223
  4. TEDUGLUTIDE [Suspect]
     Active Substance: TEDUGLUTIDE
     Indication: SHORT-BOWEL SYNDROME
     Dosage: 3.0 MILLIGRAM, (0.05MG/KG), QD
     Route: 065
     Dates: start: 20170223
  5. TEDUGLUTIDE [Suspect]
     Active Substance: TEDUGLUTIDE
     Indication: SHORT-BOWEL SYNDROME
     Dosage: 3.0 MILLIGRAM, (0.05MG/KG), QD
     Route: 065
     Dates: start: 20170223
  6. CALCIUM [Concomitant]
     Active Substance: CALCIUM
     Indication: OSTEOPOROSIS
     Dosage: 500 MILLIGRAM, QD
     Route: 048
     Dates: start: 20180817
  7. TEDUGLUTIDE [Suspect]
     Active Substance: TEDUGLUTIDE
     Indication: SHORT-BOWEL SYNDROME
     Dosage: 3.0 MILLIGRAM, (0.05MG/KG), QD
     Route: 065
     Dates: start: 20170223
  8. SODIUM CHLORIDE. [Concomitant]
     Active Substance: SODIUM CHLORIDE
     Indication: SUPPLEMENTATION THERAPY
     Dosage: 1000 MILLIGRAM, TID
     Route: 048
     Dates: start: 20180817

REACTIONS (1)
  - Iron deficiency [Recovered/Resolved]

NARRATIVE: CASE EVENT DATE: 20171110
